FAERS Safety Report 4845274-8 (Version None)
Quarter: 2005Q4

REPORT INFORMATION
  Report Type: 
  Country: None (occurrence: None)
  Receive Date: 20051125
  Receipt Date: 20051114
  Transmission Date: 20060501
  Serious: Yes (Hospitalization, Other)
  Sender: FDA-Public Use
  Company Number: 2005122045

PATIENT
  Age: 47 Year
  Sex: Male
  Weight: 74.8435 kg

DRUGS (7)
  1. NEURONTIN [Suspect]
     Indication: ANXIETY
     Dosage: 600 MG (200 MG, 2 IN 1 D), ORAL
     Route: 048
     Dates: start: 20050101
  2. ALL OTHER NON-THERAPEUTIC PRODUCTS (ALL OTHER NON-THERAPEUTIC PRODUCTS [Suspect]
     Indication: ILL-DEFINED DISORDER
     Dosage: ORAL
     Route: 048
     Dates: start: 20050801
  3. LEXAPRO [Suspect]
     Indication: ILL-DEFINED DISORDER
     Route: 048
     Dates: start: 20000901, end: 20050901
  4. ZYPREXA [Suspect]
     Indication: ILL-DEFINED DISORDER
     Dosage: 2.5 MG, ORAL
     Route: 048
  5. CYMBALTA [Suspect]
     Indication: ILL-DEFINED DISORDER
     Dosage: 60 MG (1 D)
  6. KLONOPIN [Concomitant]
  7. DEPAKOTE [Concomitant]

REACTIONS (10)
  - ANXIETY [None]
  - BACK PAIN [None]
  - BLOOD PRESSURE FLUCTUATION [None]
  - DRUG HYPERSENSITIVITY [None]
  - DYSPNOEA [None]
  - FEELING ABNORMAL [None]
  - NEURALGIA [None]
  - NEUROPATHY [None]
  - PARAESTHESIA [None]
  - RETCHING [None]
